FAERS Safety Report 4710469-0 (Version None)
Quarter: 2005Q3

REPORT INFORMATION
  Report Type: 
  Country: None (occurrence: None)
  Receive Date: 20050711
  Receipt Date: 20050701
  Transmission Date: 20060218
  Serious: Yes (Other)
  Sender: FDA-Public Use
  Company Number: US-JNJFOC-20050601883

PATIENT
  Sex: Female
  Weight: 58.06 kg

DRUGS (1)
  1. LEVAQUIN [Suspect]
     Indication: PNEUMONIA
     Route: 049
     Dates: start: 20050526, end: 20050527

REACTIONS (2)
  - GASTROINTESTINAL ULCER HAEMORRHAGE [None]
  - PAIN [None]
